FAERS Safety Report 14182996 (Version 2)
Quarter: 2017Q4

REPORT INFORMATION
  Report Type: Report from Study
  Country: CZ (occurrence: CZ)
  Receive Date: 20171113
  Receipt Date: 20171222
  Transmission Date: 20180321
  Serious: Yes (Other)
  Sender: FDA-Public Use
  Company Number: CZ-BAYER-2017-212365

PATIENT
  Age: 35 Year
  Sex: Female
  Weight: 55 kg

DRUGS (2)
  1. MIRENA [Suspect]
     Active Substance: LEVONORGESTREL
  2. MIRENA [Suspect]
     Active Substance: LEVONORGESTREL
     Dosage: 20 MCG/24HR, CONT
     Route: 015
     Dates: start: 20171024, end: 20171024

REACTIONS (6)
  - Procedural complication [None]
  - Procedural pain [None]
  - Uterine spasm [None]
  - Genitourinary operation [Recovered/Resolved]
  - Complication of device insertion [Recovered/Resolved]
  - Post procedural complication [None]

NARRATIVE: CASE EVENT DATE: 20171024
